FAERS Safety Report 8433963 (Version 2)
Quarter: 2014Q1

REPORT INFORMATION
  Report Type: Report from Study
  Country: MX (occurrence: MX)
  Receive Date: 20120229
  Receipt Date: 20140115
  Transmission Date: 20141002
  Serious: Yes (Death, Hospitalization)
  Sender: FDA-Public Use
  Company Number: PHHY2012MX017276

PATIENT
  Age: 83 Year
  Sex: Female

DRUGS (4)
  1. CO-DIOVAN [Suspect]
     Indication: HYPERTENSION
     Dosage: 1 TABLET (160/12.5 MG) DAILY
     Route: 048
  2. GLUCOVANCE [Concomitant]
     Dosage: UNK
  3. ASPIRIN PROTECT [Concomitant]
     Dosage: 1 DF, DAILY
  4. ANTICOAGULANTS [Concomitant]
     Dosage: UNK UKN, UNK

REACTIONS (2)
  - Myocardial infarction [Fatal]
  - Cerebral infarction [Unknown]
